FAERS Safety Report 6676725-4 (Version None)
Quarter: 2010Q2

REPORT INFORMATION
  Report Type: 
  Country: None (occurrence: None)
  Receive Date: 20100412
  Receipt Date: 20100331
  Transmission Date: 20101027
  Serious: Yes (Hospitalization)
  Sender: FDA-Public Use
  Company Number: US-ROCHE-685168

PATIENT
  Sex: Male
  Weight: 52 kg

DRUGS (5)
  1. TOCILIZUMAB [Suspect]
     Indication: RHEUMATOID ARTHRITIS
     Dosage: PERMANENTLY DISCONTINUED
     Route: 042
     Dates: start: 20091212
  2. COZAAR [Concomitant]
  3. LASIX [Concomitant]
  4. PREDNISONE TAB [Concomitant]
  5. CARVEDILOL [Concomitant]
     Dosage: BID

REACTIONS (1)
  - ABDOMINAL PAIN LOWER [None]
